FAERS Safety Report 7517953-5 (Version None)
Quarter: 2011Q2

REPORT INFORMATION
  Report Type: 
  Country: None (occurrence: None)
  Receive Date: 20110527
  Receipt Date: 20110527
  Transmission Date: 20111010
  Serious: Yes (Hospitalization)
  Sender: FDA-Public Use
  Company Number: None

PATIENT
  Sex: Male
  Weight: 48.8 kg

DRUGS (3)
  1. METHOTREXATE [Suspect]
     Dosage: 7015 MG
     Dates: end: 20110520
  2. MERCAPTOPURINE [Suspect]
     Dosage: 250 MG
     Dates: end: 20110525
  3. VINCRISTINE SULFATE [Suspect]
     Dosage: 2 MG
     Dates: end: 20110519

REACTIONS (4)
  - FLUID INTAKE REDUCED [None]
  - MUCOSAL INFLAMMATION [None]
  - PAIN [None]
  - HYPOPHAGIA [None]
